FAERS Safety Report 18089094 (Version 1)
Quarter: 2020Q3

REPORT INFORMATION
  Report Type: Spontaneous
  Country: US (occurrence: US)
  Receive Date: 20200729
  Receipt Date: 20200729
  Transmission Date: 20201103
  Serious: No
  Sender: FDA-Public Use
  Company Number: US-TEVA-2020-US-1807064

PATIENT

DRUGS (1)
  1. ALBUTEROL SULFATE HFA TEVA [Suspect]
     Active Substance: ALBUTEROL SULFATE
     Indication: ASTHMA
     Dosage: 20 PUFFS FROM 2 OF YOUR INHALER OVER THE COURSE OF 3 HOURS IN ONE DAY
     Route: 055
     Dates: start: 20200714

REACTIONS (5)
  - Wheezing [Unknown]
  - Drug ineffective [Unknown]
  - Asthma [Unknown]
  - Product substitution issue [Unknown]
  - Dyspnoea [Unknown]

NARRATIVE: CASE EVENT DATE: 20200714
